FAERS Safety Report 13335665 (Version 2)
Quarter: 2017Q2

REPORT INFORMATION
  Report Type: Spontaneous
  Country: JP (occurrence: JP)
  Receive Date: 20170314
  Receipt Date: 20170602
  Transmission Date: 20170830
  Serious: Yes (Death, Hospitalization)
  Sender: FDA-Public Use
  Company Number: JP-CELGENEUS-JPN-2017033741

PATIENT
  Age: 75 Year
  Sex: Male
  Weight: 47 kg

DRUGS (2)
  1. VIDAZA [Suspect]
     Active Substance: AZACITIDINE
     Indication: MYELODYSPLASTIC SYNDROME
     Dosage: 112 MILLIGRAM
     Route: 058
     Dates: start: 20161205, end: 20161209
  2. VIDAZA [Suspect]
     Active Substance: AZACITIDINE
     Dosage: 425 MILLIGRAM
     Route: 058
     Dates: start: 20170110, end: 20170116

REACTIONS (3)
  - Infection [Recovered/Resolved]
  - Cellulitis [Not Recovered/Not Resolved]
  - Cerebral haemorrhage [Fatal]

NARRATIVE: CASE EVENT DATE: 20170106
